FAERS Safety Report 6589210-5 (Version None)
Quarter: 2010Q1

REPORT INFORMATION
  Report Type: 
  Country: None (occurrence: None)
  Receive Date: 20100218
  Receipt Date: 20100209
  Transmission Date: 20100710
  Serious: Yes (Death)
  Sender: FDA-Public Use
  Company Number: US-ROXANE LABORATORIES, INC.-2010-DE-00813GD

PATIENT
  Age: 18 Year
  Sex: Male

DRUGS (4)
  1. MORPHINE SULFATE [Suspect]
     Route: 048
  2. BENZODIAZEPINE [Suspect]
     Route: 048
  3. DIAZEPAM [Suspect]
     Route: 048
  4. THEOPHYLLINE [Suspect]
     Route: 048

REACTIONS (1)
  - DRUG ABUSE [None]
